FAERS Safety Report 9832707 (Version 3)
Quarter: 2014Q2

REPORT INFORMATION
  Report Type: Spontaneous
  Country: US (occurrence: US)
  Receive Date: 20140121
  Receipt Date: 20140618
  Transmission Date: 20141212
  Serious: No
  Sender: FDA-Public Use
  Company Number: US-PFIZER INC-2014016540

PATIENT
  Age: 49 Year
  Sex: Female
  Weight: 97.51 kg

DRUGS (4)
  1. LISINOPRIL [Concomitant]
     Dosage: UNK
  2. LYRICA [Suspect]
     Indication: DIABETIC NEUROPATHY
     Dosage: 50 MG, 2X/DAY
     Route: 048
     Dates: start: 2013
  3. LYRICA [Suspect]
     Indication: SPINAL DISORDER
  4. VICOPROFEN [Concomitant]
     Indication: PAIN
     Dosage: UNK

REACTIONS (1)
  - Blister [Unknown]
